FAERS Safety Report 10376285 (Version 2)
Quarter: 2014Q3

REPORT INFORMATION
  Report Type: Spontaneous
  Country: US (occurrence: US)
  Receive Date: 20140811
  Receipt Date: 20140811
  Transmission Date: 20150326
  Serious: No
  Sender: FDA-Public Use
  Company Number: US-ASTRAZENECA-2004UW12469

PATIENT
  Age: 72 Year
  Sex: Female
  Weight: 60.8 kg

DRUGS (7)
  1. TAMOXIFEN [Suspect]
     Active Substance: TAMOXIFEN
     Route: 065
     Dates: start: 2008
  2. HERCEPTIN [Concomitant]
     Active Substance: TRASTUZUMAB
  3. ARIMIDEX [Suspect]
     Active Substance: ANASTROZOLE
     Indication: BREAST CANCER
     Route: 048
     Dates: start: 20040601
  4. DILTIAZEM [Concomitant]
     Active Substance: DILTIAZEM
  5. ENALAPRIL [Concomitant]
     Active Substance: ENALAPRIL
  6. THYROID PILLS [Concomitant]
     Indication: THYROID DISORDER
  7. BLOOD PRESSURE PILLS [Concomitant]
     Active Substance: UNSPECIFIED INGREDIENT
     Indication: BLOOD PRESSURE ABNORMAL

REACTIONS (2)
  - Weight increased [Unknown]
  - Weight fluctuation [Unknown]

NARRATIVE: CASE EVENT DATE: 20040615
